FAERS Safety Report 4577827-9 (Version None)
Quarter: 2005Q1

REPORT INFORMATION
  Report Type: 
  Country: None (occurrence: None)
  Receive Date: 20050209
  Receipt Date: 20050125
  Transmission Date: 20050727
  Serious: Yes (Hospitalization)
  Sender: FDA-Public Use
  Company Number: F01200500152

PATIENT
  Age: 56 Year
  Sex: Male

DRUGS (6)
  1. OXALIPLATIN - SOLUTION - 85 MG/M2 [Suspect]
     Indication: OESOPHAGEAL CARCINOMA
     Route: 042
  2. FLUOROURACIL [Suspect]
     Route: 042
  3. LEUCOVORIN CALCIUM [Suspect]
     Route: 042
  4. ONDANSETRON HYDROCHLORIDE [Concomitant]
  5. ACETAMINOPHEN [Concomitant]
  6. GAVISCON (ALIGINIC ACID/ALUMINUM HYDROXIDE/SODIUM BICARBONATE) [Concomitant]

REACTIONS (1)
  - DYSPHAGIA [None]
